FAERS Safety Report 10142827 (Version 1)
Quarter: 2014Q2

REPORT INFORMATION
  Report Type: Spontaneous
  Country: US (occurrence: None)
  Receive Date: 20140428
  Receipt Date: 20140428
  Transmission Date: 20141212
  Serious: Yes (Death)
  Sender: FDA-Public Use
  Company Number: CIO14029630

PATIENT
  Age: 16 Month
  Sex: Female

DRUGS (1)
  1. ZZZQUIL NIGHTIME SLEEP-AID [Suspect]
     Route: 048
     Dates: start: 201302, end: 201302

REACTIONS (2)
  - Off label use [None]
  - Asphyxia [None]
